FAERS Safety Report 10009429 (Version 2)
Quarter: 2014Q1

REPORT INFORMATION
  Report Type: Spontaneous
  Country: US (occurrence: US)
  Receive Date: 20140313
  Receipt Date: 20140313
  Transmission Date: 20141002
  Serious: No
  Sender: FDA-Public Use
  Company Number: US-INCYTE CORPORATION-2012IN001288

PATIENT
  Age: 49 Year
  Sex: Female

DRUGS (6)
  1. JAKAFI [Suspect]
     Indication: MYELOFIBROSIS
     Dosage: 15 MG, BID
     Route: 048
     Dates: start: 20120303, end: 20120630
  2. JAKAFI [Suspect]
     Dosage: UNK, UNK
     Route: 048
  3. PAXIL [Concomitant]
  4. PROGRAF [Concomitant]
  5. LANTUS [Concomitant]
  6. HUMALOG [Concomitant]

REACTIONS (1)
  - Neuropathy peripheral [Recovered/Resolved]
